FAERS Safety Report 19386337 (Version 1)
Quarter: 2021Q2

REPORT INFORMATION
  Report Type: Spontaneous
  Country: CN (occurrence: CN)
  Receive Date: 20210607
  Receipt Date: 20210607
  Transmission Date: 20210717
  Serious: Yes (Other)
  Sender: FDA-Public Use
  Company Number: CN-PFIZER INC-2021623174

PATIENT
  Age: 6 Year
  Sex: Female
  Weight: 16 kg

DRUGS (3)
  1. CYTARABINE. [Suspect]
     Active Substance: CYTARABINE
     Indication: CHEMOTHERAPY
     Dosage: 0.066 G, 2X/DAY
     Route: 041
     Dates: start: 20210512
  2. CYTARABINE. [Suspect]
     Active Substance: CYTARABINE
     Indication: NEOPLASM
  3. GLUCOSE [Concomitant]
     Active Substance: DEXTROSE
     Dosage: 50 ML, 2X/DAY
     Route: 041
     Dates: start: 20210512

REACTIONS (5)
  - Erythema [Unknown]
  - Swelling face [Recovered/Resolved]
  - Ear swelling [Recovered/Resolved]
  - Peripheral swelling [Recovered/Resolved]
  - Auricular swelling [Recovered/Resolved]

NARRATIVE: CASE EVENT DATE: 20210513
